FAERS Safety Report 5993048-7 (Version None)
Quarter: 2008Q4

REPORT INFORMATION
  Report Type: 
  Country: None (occurrence: None)
  Receive Date: 20081210
  Receipt Date: 20081210
  Transmission Date: 20090506
  Serious: No
  Sender: FDA-Public Use
  Company Number: None

PATIENT
  Age: 61 Year
  Sex: Male
  Weight: 128 kg

DRUGS (2)
  1. TRIMETHOPRIM-SULFAMETHOXAZOLE [Suspect]
     Indication: INFECTION
     Dosage: 1 TAB BID PO
     Route: 048
     Dates: start: 20081010, end: 20081020
  2. NAPROXEN [Suspect]
     Indication: PAIN
     Dosage: 2 TAB PM PO
     Route: 048
     Dates: start: 20081010, end: 20081020

REACTIONS (1)
  - HYPERKALAEMIA [None]
